FAERS Safety Report 18199131 (Version 1)
Quarter: 2020Q3

REPORT INFORMATION
  Report Type: Spontaneous
  Country: RU (occurrence: RU)
  Receive Date: 20200826
  Receipt Date: 20200826
  Transmission Date: 20201103
  Serious: Yes (Other)
  Sender: FDA-Public Use
  Company Number: RU-VIIV HEALTHCARE LIMITED-RU2020EME160950

PATIENT
  Sex: Female

DRUGS (13)
  1. ABACAVIR. [Interacting]
     Active Substance: ABACAVIR
     Indication: HIV INFECTION
     Dosage: UNK
  2. VEMURAFENIB. [Interacting]
     Active Substance: VEMURAFENIB
     Indication: MALIGNANT MELANOMA
     Dosage: 960 MG, BID
  3. COBIMETINIB. [Interacting]
     Active Substance: COBIMETINIB
     Dosage: 40 MG, QD
  4. DEXAMETHASONE. [Suspect]
     Active Substance: DEXAMETHASONE
     Dosage: 12 MG/DAY
     Route: 048
  5. RITONAVIR. [Interacting]
     Active Substance: RITONAVIR
     Indication: HIV INFECTION
     Dosage: UNK
  6. TENOFOVIR DISOPROXIL FUMARATE. [Interacting]
     Active Substance: TENOFOVIR DISOPROXIL FUMARATE
     Indication: HIV INFECTION
     Dosage: UNK
  7. DARUNAVIR [Interacting]
     Active Substance: DARUNAVIR
     Indication: HIV INFECTION
     Dosage: UNK
  8. COBIMETINIB. [Interacting]
     Active Substance: COBIMETINIB
     Indication: MALIGNANT MELANOMA
     Dosage: 60 MG, QD
  9. VEMURAFENIB. [Interacting]
     Active Substance: VEMURAFENIB
     Dosage: 720 UNK
  10. DEXAMETHASONE. [Suspect]
     Active Substance: DEXAMETHASONE
     Dosage: 2 MG
     Route: 048
  11. DEXAMETHASONE. [Suspect]
     Active Substance: DEXAMETHASONE
     Indication: OEDEMA
     Dosage: 8 MG/DAY
     Route: 048
  12. DOLUTEGRAVIR [Interacting]
     Active Substance: DOLUTEGRAVIR
     Indication: HIV INFECTION
     Dosage: UNK
  13. LAMIVUDINE. [Suspect]
     Active Substance: LAMIVUDINE
     Indication: HIV INFECTION
     Dosage: UNK

REACTIONS (20)
  - Drug interaction [Unknown]
  - Pyrexia [Recovered/Resolved]
  - Epistaxis [Recovered/Resolved]
  - Angioedema [Unknown]
  - Cutaneous vasculitis [Recovered/Resolved]
  - Metastases to central nervous system [Unknown]
  - Myalgia [Unknown]
  - Disease progression [Unknown]
  - Rash macular [Recovered/Resolved]
  - Pigmentation disorder [Recovered/Resolved]
  - Sleep disorder [Unknown]
  - Toxic neuropathy [Unknown]
  - Blood lactate dehydrogenase increased [Unknown]
  - Skin fissures [Recovered/Resolved]
  - Sensory loss [Recovered/Resolved]
  - Purpura [Recovered/Resolved]
  - Skin toxicity [Recovered/Resolved]
  - Peripheral swelling [Recovered/Resolved]
  - Pneumonia [Unknown]
  - Metastases to lung [Unknown]

NARRATIVE: CASE EVENT DATE: 201909
